FAERS Safety Report 5711332-9 (Version None)
Quarter: 2008Q2

REPORT INFORMATION
  Report Type: 
  Country: None (occurrence: None)
  Receive Date: 20080421
  Receipt Date: 20080411
  Transmission Date: 20081010
  Serious: Yes (Life-Threatening, Other)
  Sender: FDA-Public Use
  Company Number: A0716810A

PATIENT
  Age: 80 Year
  Sex: Female
  Weight: 69.1 kg

DRUGS (6)
  1. AVANDIA [Suspect]
     Dosage: 2MG PER DAY
     Route: 048
     Dates: start: 20070101, end: 20080101
  2. ZETIA [Concomitant]
     Dosage: 10MG PER DAY
  3. DIOVAN [Concomitant]
     Dosage: 80MG PER DAY
  4. MOTRIN [Concomitant]
     Dosage: 200MG AS REQUIRED
  5. NORTRIPTYLINE HCL [Concomitant]
     Dosage: 50MG TWICE PER DAY
     Route: 048
  6. PREVACID [Concomitant]
     Dosage: 30MG PER DAY

REACTIONS (2)
  - HYPOGLYCAEMIA [None]
  - LETHARGY [None]
